FAERS Safety Report 4765975-X (Version None)
Quarter: 2005Q3

REPORT INFORMATION
  Report Type: 
  Country: None (occurrence: None)
  Receive Date: 20050906
  Receipt Date: 20050824
  Transmission Date: 20060218
  Serious: Yes (Hospitalization)
  Sender: FDA-Public Use
  Company Number: GBS050818256

PATIENT
  Age: 51 Year
  Sex: Female

DRUGS (4)
  1. FLUOXETINE [Suspect]
     Indication: DEPRESSION
     Dosage: 20 MG
     Dates: end: 20050803
  2. PARACETAMOL [Concomitant]
  3. IBUPROFEN [Concomitant]
  4. SENNA [Concomitant]

REACTIONS (5)
  - BLOOD SODIUM DECREASED [None]
  - LIVER FUNCTION TEST ABNORMAL [None]
  - PERICARDIAL EFFUSION [None]
  - PLEURAL EFFUSION [None]
  - POLYSEROSITIS [None]
